FAERS Safety Report 5759237-1 (Version None)
Quarter: 2008Q2

REPORT INFORMATION
  Report Type: 
  Country: None (occurrence: None)
  Receive Date: 20080604
  Receipt Date: 20080523
  Transmission Date: 20081010
  Serious: Yes (Disabling)
  Sender: FDA-Public Use
  Company Number: US-GILEAD-2008-0015863

PATIENT
  Sex: Male
  Weight: 70.824 kg

DRUGS (6)
  1. ATRIPLA [Suspect]
     Indication: HIV INFECTION
     Dates: start: 20060310
  2. SEPTRA DS [Concomitant]
     Indication: DERMATITIS ALLERGIC
     Route: 048
     Dates: end: 20060906
  3. ZITHROMAX [Concomitant]
     Indication: OPPORTUNISTIC INFECTION PROPHYLAXIS
     Route: 048
     Dates: start: 20060906, end: 20070901
  4. MEPROX [Concomitant]
     Indication: ANTIFUNGAL PROPHYLAXIS
     Route: 048
     Dates: start: 20060906, end: 20070101
  5. ISONIAZID [Concomitant]
     Indication: ANTIBIOTIC PROPHYLAXIS
     Route: 048
  6. VITAMIN B6 [Concomitant]
     Indication: VITAMIN SUPPLEMENTATION
     Dates: start: 20070308, end: 20080117

REACTIONS (1)
  - OSTEONECROSIS [None]
